FAERS Safety Report 26204372 (Version 1)
Quarter: 2025Q4

REPORT INFORMATION
  Report Type: Spontaneous
  Country: EU (occurrence: EU)
  Receive Date: 20251226
  Receipt Date: 20251226
  Transmission Date: 20260117
  Serious: Yes (Other)
  Sender: FRESENIUS KABI
  Company Number: None

PATIENT
  Age: 62 Year
  Sex: Female
  Weight: 87 kg

DRUGS (5)
  1. LINEZOLID [Suspect]
     Active Substance: LINEZOLID
     Indication: Sepsis
     Dosage: 600 MG X2/DAY
     Route: 042
     Dates: start: 20251127, end: 20251208
  2. COLISTIMETHATE SODIUM [Suspect]
     Active Substance: COLISTIMETHATE SODIUM
     Indication: Sepsis
     Dosage: 3 MUI X3 /D
     Route: 042
     Dates: start: 20251202, end: 20251208
  3. AMIKACIN SULFATE [Suspect]
     Active Substance: AMIKACIN SULFATE
     Indication: Sepsis
     Route: 042
     Dates: start: 20251202, end: 20251202
  4. MICAFUNGIN [Suspect]
     Active Substance: MICAFUNGIN SODIUM
     Indication: Fungaemia
     Route: 042
     Dates: start: 20251202, end: 20251208
  5. MEROPENEM [Suspect]
     Active Substance: MEROPENEM
     Indication: Sepsis
     Route: 042
     Dates: start: 20251202, end: 20251208

REACTIONS (2)
  - Polyuria [Recovered/Resolved]
  - Pseudo-Bartter syndrome [Recovered/Resolved]

NARRATIVE: CASE EVENT DATE: 20251206
